FAERS Safety Report 25873162 (Version 1)
Quarter: 2025Q4

REPORT INFORMATION
  Report Type: Spontaneous
  Country: US (occurrence: None)
  Receive Date: 20251002
  Receipt Date: 20251002
  Transmission Date: 20260118
  Serious: Yes (Hospitalization)
  Sender: FDA-CTU
  Company Number: None

PATIENT
  Age: 68 Year
  Sex: Female

DRUGS (1)
  1. HUMIRA [Suspect]
     Active Substance: ADALIMUMAB
     Indication: Rheumatoid arthritis
     Dosage: ? INJECT 40MG SUBCUTANEOUSLY EVERY 2 WEEKS AS DIRECTED.
     Route: 058

REACTIONS (1)
  - Surgery [None]

NARRATIVE: CASE EVENT DATE: 20250930
